FAERS Safety Report 19850410 (Version 6)
Quarter: 2022Q1

REPORT INFORMATION
  Report Type: Report from Study
  Country: US (occurrence: US)
  Receive Date: 20210917
  Receipt Date: 20220329
  Transmission Date: 20220423
  Serious: Yes (Hospitalization, Other)
  Sender: FDA-Public Use
  Company Number: NVSC2021US211696

PATIENT
  Age: 33 Year
  Sex: Female

DRUGS (1)
  1. KESIMPTA [Suspect]
     Active Substance: OFATUMUMAB
     Indication: Multiple sclerosis
     Dosage: UNK
     Route: 058
     Dates: start: 20210908

REACTIONS (4)
  - Pneumonia [Unknown]
  - Feeling abnormal [Unknown]
  - Limb discomfort [Unknown]
  - Accidental exposure to product [Unknown]

NARRATIVE: CASE EVENT DATE: 20210915
